FAERS Safety Report 8102111-6 (Version None)
Quarter: 2012Q1

REPORT INFORMATION
  Report Type: 
  Country: None (occurrence: None)
  Receive Date: 20120131
  Receipt Date: 20120125
  Transmission Date: 20120608
  Serious: Yes (Death, Other)
  Sender: FDA-Public Use
  Company Number: US-ELI_LILLY_AND_COMPANY-US201112004186

PATIENT
  Sex: Male
  Weight: 113.38 kg

DRUGS (9)
  1. CLONIDINE [Concomitant]
     Indication: BLOOD PRESSURE MANAGEMENT
     Dosage: UNK, EACH EVENING
     Dates: start: 20061213
  2. BYETTA [Suspect]
     Indication: TYPE 2 DIABETES MELLITUS
     Dosage: 5 UG, BID
     Route: 058
     Dates: start: 20061213, end: 20070101
  3. ONGLYZA [Concomitant]
     Dosage: UNK, UNKNOWN
     Dates: start: 20091223
  4. DIOVAN HCT [Concomitant]
     Indication: BLOOD PRESSURE MANAGEMENT
     Dosage: UNK, UNKNOWN
  5. JANUVIA [Concomitant]
     Dosage: UNK, UNKNOWN
  6. AVANDAMET [Concomitant]
     Indication: DIABETES MELLITUS
     Dosage: UNK, UNKNOWN
  7. EFFEXOR [Concomitant]
     Dosage: UNK, UNKNOWN
  8. JANUVIA [Concomitant]
     Dosage: UNK, UNKNOWN
     Dates: start: 20090601, end: 20091222
  9. NIACIN [Concomitant]
     Indication: BLOOD TRIGLYCERIDES
     Dosage: UNK
     Dates: end: 20070126

REACTIONS (2)
  - PANCREATIC CARCINOMA METASTATIC [None]
  - PANCREATITIS CHRONIC [None]
